FAERS Safety Report 10264505 (Version 1)
Quarter: 2014Q2

REPORT INFORMATION
  Report Type: Report from Study
  Country: DE (occurrence: DE)
  Receive Date: 20140627
  Receipt Date: 20140627
  Transmission Date: 20141212
  Serious: Yes (Other)
  Sender: FDA-Public Use
  Company Number: DE-ROCHE-1425896

PATIENT
  Age: 46 Year
  Sex: Female
  Weight: 47.03 kg

DRUGS (4)
  1. RANIBIZUMAB [Suspect]
     Indication: RETINAL VEIN THROMBOSIS
     Route: 050
     Dates: start: 20130419
  2. RANIBIZUMAB [Suspect]
     Route: 050
     Dates: start: 20130524
  3. ACTOVEGIN [Concomitant]
  4. FLOXAL [Concomitant]
     Route: 065
     Dates: start: 20130416, end: 20130527

REACTIONS (2)
  - Abortion spontaneous [Unknown]
  - Maternal exposure during pregnancy [Unknown]
